FAERS Safety Report 10422326 (Version 1)
Quarter: 2014Q3

REPORT INFORMATION
  Report Type: Report from Study
  Country: BR (occurrence: BR)
  Receive Date: 20140901
  Receipt Date: 20140901
  Transmission Date: 20150326
  Serious: Yes (Death)
  Sender: FDA-Public Use
  Company Number: PHHY2014BR109159

PATIENT
  Sex: Female
  Weight: 61 kg

DRUGS (2)
  1. DIOVAN HCT [Suspect]
     Active Substance: HYDROCHLOROTHIAZIDE\VALSARTAN
     Indication: HYPERTENSION
     Dosage: 1 DF(300/25MG) QD IN THE MORNING
     Route: 048
     Dates: end: 20140731
  2. JANUVIA [Suspect]
     Active Substance: SITAGLIPTIN PHOSPHATE
     Indication: HYPERTENSION
     Dosage: 100 MG, QD IN THE MORNING
     Route: 048
     Dates: end: 20140731

REACTIONS (1)
  - Cardiac failure [Fatal]
